FAERS Safety Report 19801936 (Version 2)
Quarter: 2021Q3

REPORT INFORMATION
  Report Type: Spontaneous
  Country: US (occurrence: US)
  Receive Date: 20210908
  Receipt Date: 20210922
  Transmission Date: 20211014
  Serious: No
  Sender: FDA-Public Use
  Company Number: US-JNJFOC-20210858778

PATIENT
  Age: 57 Year
  Sex: Female
  Weight: 69.9 kg

DRUGS (10)
  1. EXCEDRIN [ACETYLSALICYLIC ACID;CAFFEINE;PARACETAMOL;SALICYLAMIDE] [Concomitant]
     Active Substance: ACETAMINOPHEN\ASPIRIN\CAFFEINE\SALICYLAMIDE
     Indication: HEADACHE
     Route: 065
  2. OFEV [Concomitant]
     Active Substance: NINTEDANIB
     Indication: PRODUCT USED FOR UNKNOWN INDICATION
     Route: 065
  3. TYVASO [Concomitant]
     Active Substance: TREPROSTINIL
     Dosage: 60?120 UG
  4. TYVASO [Concomitant]
     Active Substance: TREPROSTINIL
     Dosage: 18?54 UG
  5. TYLENOL [Suspect]
     Active Substance: ACETAMINOPHEN
     Indication: HEADACHE
     Route: 065
  6. IBUPROFEN. [Suspect]
     Active Substance: IBUPROFEN
     Indication: HEADACHE
     Route: 065
  7. TYVASO [Concomitant]
     Active Substance: TREPROSTINIL
     Indication: PULMONARY ARTERIAL HYPERTENSION
     Dosage: 18?54 UG (3?9 BREATHS)
     Dates: start: 20210519
  8. TYVASO [Concomitant]
     Active Substance: TREPROSTINIL
  9. SILDENAFIL CITRATE. [Concomitant]
     Active Substance: SILDENAFIL CITRATE
     Indication: PRODUCT USED FOR UNKNOWN INDICATION
     Route: 065
  10. NAPROXEN. [Concomitant]
     Active Substance: NAPROXEN
     Indication: HEADACHE
     Route: 065

REACTIONS (1)
  - Drug ineffective [Unknown]
